FAERS Safety Report 6468707-2 (Version None)
Quarter: 2009Q4

REPORT INFORMATION
  Report Type: 
  Country: None (occurrence: None)
  Receive Date: 20091203
  Receipt Date: 20091102
  Transmission Date: 20100525
  Serious: No
  Sender: FDA-Public Use
  Company Number: US-BAYER-200938461NA

PATIENT
  Age: 32 Year
  Sex: Female

DRUGS (1)
  1. MIRENA [Suspect]
     Indication: CONTRACEPTION
     Route: 048
     Dates: start: 20090501, end: 20091031

REACTIONS (1)
  - DEVICE EXPULSION [None]
